FAERS Safety Report 14868592 (Version 1)
Quarter: 2018Q2

REPORT INFORMATION
  Report Type: Spontaneous
  Country: SI (occurrence: SI)
  Receive Date: 20180509
  Receipt Date: 20180509
  Transmission Date: 20180711
  Serious: Yes (Hospitalization, Other)
  Sender: FDA-Public Use
  Company Number: SI-TEVA-2018-SI-889751

PATIENT
  Age: 64 Year
  Sex: Female

DRUGS (4)
  1. DOXORUBICIN  TEVA 2 MG/ML [Suspect]
     Active Substance: DOXORUBICIN
     Indication: BREAST CANCER
     Dosage: 2 MG/ML POWDER FOR SOLUTION FOR INFUSION
     Route: 042
     Dates: start: 20180205, end: 20180207
  2. ENDOXAN 1000 MG [Suspect]
     Active Substance: CYCLOPHOSPHAMIDE
     Indication: BREAST CANCER
     Dosage: 1000 MG POWDER FOR SOLUTION FOR INFUSION
     Route: 042
     Dates: start: 20180205, end: 20180207
  3. FEMARA [Concomitant]
     Active Substance: LETROZOLE
  4. PLIVIT D3 [Concomitant]
     Active Substance: CHOLECALCIFEROL

REACTIONS (2)
  - Injection site extravasation [Recovered/Resolved]
  - Mouth ulceration [Recovered/Resolved]

NARRATIVE: CASE EVENT DATE: 20180205
